FAERS Safety Report 14893880 (Version 3)
Quarter: 2018Q2

REPORT INFORMATION
  Report Type: Report from Study
  Country: US (occurrence: US)
  Receive Date: 20180514
  Receipt Date: 20180629
  Transmission Date: 20180711
  Serious: Yes (Hospitalization, Other)
  Sender: FDA-Public Use
  Company Number: US-ACTELION-A-NJ2018-171994

PATIENT
  Age: 37 Year
  Sex: Female

DRUGS (11)
  1. CLINDAMYCIN. [Concomitant]
     Active Substance: CLINDAMYCIN
  2. ONDANSETRON [Concomitant]
     Active Substance: ONDANSETRON
  3. OXYCODONE [Concomitant]
     Active Substance: OXYCODONE
  4. OPSUMIT [Suspect]
     Active Substance: MACITENTAN
     Indication: PULMONARY ARTERIAL HYPERTENSION
     Dosage: 10 MG, QD AT BEDTIME (HORA SOMNI)
     Route: 048
     Dates: start: 20151226, end: 201805
  5. CITALOPRAM [Concomitant]
     Active Substance: CITALOPRAM HYDROBROMIDE
  6. APAP [Concomitant]
     Active Substance: ACETAMINOPHEN
  7. PROBIOTIC [Concomitant]
     Active Substance: PROBIOTICS NOS
  8. TYLENOL [Concomitant]
     Active Substance: ACETAMINOPHEN
  9. OMEPRAZOLE. [Concomitant]
     Active Substance: OMEPRAZOLE
  10. IBU [Concomitant]
     Active Substance: IBUPROFEN
  11. GABAPENTIN. [Concomitant]
     Active Substance: GABAPENTIN

REACTIONS (4)
  - Hiatus hernia [Recovered/Resolved]
  - Heart and lung transplant [Recovered/Resolved]
  - Cardiac pacemaker insertion [Recovered/Resolved]
  - Oxygen saturation decreased [Recovered/Resolved]

NARRATIVE: CASE EVENT DATE: 20180409
